FAERS Safety Report 20160788 (Version 1)
Quarter: 2021Q4

REPORT INFORMATION
  Report Type: Spontaneous
  Country: US (occurrence: US)
  Receive Date: 20211208
  Receipt Date: 20211208
  Transmission Date: 20220303
  Serious: No
  Sender: FDA-Public Use
  Company Number: US-GW PHARMA-202112USGW05988

PATIENT

DRUGS (3)
  1. EPIDIOLEX [Suspect]
     Active Substance: CANNABIDIOL
     Indication: Lennox-Gastaut syndrome
     Dosage: 25.81 MG/KG/DAY, 240 MILLIGRAM, BID
     Route: 048
     Dates: start: 202104
  2. EPIDIOLEX [Suspect]
     Active Substance: CANNABIDIOL
     Indication: Epilepsy
  3. ONFI [Suspect]
     Active Substance: CLOBAZAM
     Indication: Seizure
     Dosage: UNK
     Route: 065
     Dates: start: 2021

REACTIONS (7)
  - Rhinorrhoea [Unknown]
  - Flushing [Unknown]
  - Seizure [Unknown]
  - Abnormal behaviour [Unknown]
  - Pyrexia [Recovered/Resolved]
  - Emergency care [Unknown]
  - Prescribed overdose [Unknown]

NARRATIVE: CASE EVENT DATE: 20210101
